FAERS Safety Report 4390064-6 (Version None)
Quarter: 2004Q2

REPORT INFORMATION
  Report Type: 
  Country: None (occurrence: None)
  Receive Date: 20040630
  Receipt Date: 20040618
  Transmission Date: 20050107
  Serious: Yes (Death, Life-Threatening, Hospitalization)
  Sender: FDA-Public Use
  Company Number: PERI00204002039

PATIENT
  Age: 68 Year
  Sex: Male

DRUGS (4)
  1. COVERSYL             (PERINDOPRIL) [Suspect]
     Indication: ILL-DEFINED DISORDER
     Dosage: 2 MG QD PO
     Route: 048
     Dates: start: 20040308, end: 20040315
  2. VIOXX [Suspect]
     Indication: ILL-DEFINED DISORDER
     Dosage: 25 MG QD PO
     Route: 048
     Dates: start: 20040308, end: 20040304
  3. OMEPRAZOLE [Suspect]
     Indication: ILL-DEFINED DISORDER
     Dosage: 20 MG DAILYPO
     Route: 048
     Dates: start: 20040308, end: 20040315
  4. PRAVASTATIN SODIUM [Suspect]
     Indication: ILL-DEFINED DISORDER
     Dosage: 10 MG DAILYPO
     Route: 048
     Dates: start: 20040304, end: 20040315

REACTIONS (2)
  - AGRANULOCYTOSIS [None]
  - SEPTIC SHOCK [None]
